FAERS Safety Report 5514283-8 (Version None)
Quarter: 2007Q4

REPORT INFORMATION
  Report Type: 
  Country: None (occurrence: None)
  Receive Date: 20071113
  Receipt Date: 20071105
  Transmission Date: 20080405
  Serious: Yes (Hospitalization, Congenital Anomaly)
  Sender: FDA-Public Use
  Company Number: IT-JNJFOC-20070905858

PATIENT
  Age: 2 Month
  Sex: Female
  Weight: 2 kg

DRUGS (2)
  1. TOPAMAX [Suspect]
     Indication: DRUG EXPOSURE DURING PREGNANCY
  2. DEPAKOTE [Suspect]
     Indication: DRUG EXPOSURE DURING PREGNANCY

REACTIONS (4)
  - ATRIAL SEPTAL DEFECT [None]
  - CONGENITAL HYPERTHYROIDISM [None]
  - HYPOCALCAEMIA [None]
  - ICHTHYOSIS [None]
